FAERS Safety Report 6821808-9 (Version None)
Quarter: 2010Q3

REPORT INFORMATION
  Report Type: 
  Country: None (occurrence: None)
  Receive Date: 20100706
  Receipt Date: 20100706
  Transmission Date: 20110219
  Serious: Yes (Other)
  Sender: FDA-Public Use
  Company Number: None

PATIENT
  Age: 70 Year
  Sex: Female
  Weight: 83.4619 kg

DRUGS (1)
  1. LOTREL [Suspect]
     Dosage: 5/20 MG 2 PO QDAY PO
     Route: 048
     Dates: start: 20091209, end: 20100628

REACTIONS (2)
  - OEDEMA [None]
  - RASH PRURITIC [None]
